FAERS Safety Report 11195909 (Version 1)
Quarter: 2015Q2

REPORT INFORMATION
  Report Type: Spontaneous
  Country: US (occurrence: None)
  Receive Date: 20150616
  Receipt Date: 20150616
  Transmission Date: 20150821
  Serious: Yes (Death, Hospitalization)
  Sender: FDA-Public Use
  Company Number: None

PATIENT
  Age: 2 Month
  Sex: Female
  Weight: 3.9 kg

DRUGS (3)
  1. DAUNORUBICIN [Suspect]
     Active Substance: DAUNORUBICIN
     Dates: end: 20150601
  2. CYTARABINE. [Suspect]
     Active Substance: CYTARABINE
     Dates: end: 20150604
  3. ETOPOSIDE (VP-16) [Suspect]
     Active Substance: ETOPOSIDE
     Dates: end: 20150601

REACTIONS (15)
  - Fluid overload [None]
  - Colitis [None]
  - Gastrointestinal haemorrhage [None]
  - Blood bilirubin increased [None]
  - Klebsiella test positive [None]
  - Blood culture positive [None]
  - Renal failure [None]
  - Liver function test abnormal [None]
  - Dialysis [None]
  - Hypotension [None]
  - Oedema [None]
  - Coagulopathy [None]
  - Culture urine positive [None]
  - Cerebral atrophy [None]
  - Abdominal distension [None]

NARRATIVE: CASE EVENT DATE: 20150604
